FAERS Safety Report 10301501 (Version 1)
Quarter: 2014Q3

REPORT INFORMATION
  Report Type: Spontaneous
  Country: US (occurrence: None)
  Receive Date: 20140710
  Receipt Date: 20140710
  Transmission Date: 20150326
  Serious: Yes (Other)
  Sender: FDA-Public Use
  Company Number: None

PATIENT
  Age: 88 Year
  Sex: Male

DRUGS (1)
  1. ZOLPIDEM [Suspect]
     Active Substance: ZOLPIDEM\ZOLPIDEM TARTRATE
     Indication: SLEEP DISORDER
     Dosage: 1, PRN/AS NEEDED, ORAL
     Route: 048

REACTIONS (4)
  - Product substitution issue [None]
  - Fatigue [None]
  - Feeling abnormal [None]
  - Agitation [None]

NARRATIVE: CASE EVENT DATE: 20140625
